FAERS Safety Report 8295074-4 (Version None)
Quarter: 2012Q2

REPORT INFORMATION
  Report Type: 
  Country: None (occurrence: None)
  Receive Date: 20120416
  Receipt Date: 20120412
  Transmission Date: 20120825
  Serious: Yes (Other)
  Sender: FDA-Public Use
  Company Number: ADR-2011-10724

PATIENT
  Sex: Female

DRUGS (1)
  1. LIORESAL [Suspect]
     Indication: MUSCLE SPASTICITY
     Dosage: 178.41 MCG, DAILY INTR
     Route: 037

REACTIONS (3)
  - DEVICE DISLOCATION [None]
  - IMPLANT SITE PAIN [None]
  - IMPLANT SITE SWELLING [None]
